FAERS Safety Report 5187910-5 (Version None)
Quarter: 2006Q4

REPORT INFORMATION
  Report Type: 
  Country: None (occurrence: None)
  Receive Date: 20061221
  Receipt Date: 20061211
  Transmission Date: 20070319
  Serious: Yes (Hospitalization)
  Sender: FDA-Public Use
  Company Number: 2006AP05978

PATIENT
  Age: 40 Year
  Sex: Female

DRUGS (1)
  1. XYLOCAINE [Suspect]
     Dates: start: 20061211, end: 20061211

REACTIONS (1)
  - PYREXIA [None]
